FAERS Safety Report 11567082 (Version 1)
Quarter: 2015Q3

REPORT INFORMATION
  Report Type: Spontaneous
  Country: CO (occurrence: CO)
  Receive Date: 20150929
  Receipt Date: 20150929
  Transmission Date: 20151125
  Serious: Yes (Death)
  Sender: FDA-Public Use
  Company Number: CO-PFIZER INC-2015310350

PATIENT

DRUGS (1)
  1. SUTENT [Suspect]
     Active Substance: SUNITINIB MALATE
     Dosage: 50 MG, CYCLIC

REACTIONS (6)
  - Mass [Unknown]
  - Mucosal inflammation [Unknown]
  - Neck pain [Unknown]
  - Pleural effusion [Unknown]
  - Death [Fatal]
  - Oedema [Unknown]
